FAERS Safety Report 13163327 (Version 2)
Quarter: 2017Q1

REPORT INFORMATION
  Report Type: Report from Study
  Country: UA (occurrence: UA)
  Receive Date: 20170130
  Receipt Date: 20170207
  Transmission Date: 20170428
  Serious: Yes (Life-Threatening, Other)
  Sender: FDA-Public Use
  Company Number: UA-TEVA-733875ISR

PATIENT
  Age: 7 Year
  Sex: Male
  Weight: 21 kg

DRUGS (13)
  1. PLATELETS [Concomitant]
     Active Substance: HUMAN PLATELET, ALLOGENIC
     Indication: THROMBOCYTOPENIA
     Dosage: 150 ML DAILY;
     Route: 042
     Dates: start: 20170123, end: 20170123
  2. ONDANSETRONUM [Concomitant]
     Active Substance: ONDANSETRON
     Dosage: 12 MILLIGRAM DAILY;
     Route: 042
     Dates: start: 20161230, end: 20161230
  3. HOLOXANUM [Suspect]
     Active Substance: IFOSFAMIDE
     Indication: EMBRYONAL RHABDOMYOSARCOMA
     Dosage: 2640 MILLIGRAM DAILY;
     Route: 042
     Dates: start: 20170114, end: 20170115
  4. ETAMSYLATE [Concomitant]
     Active Substance: ETHAMSYLATE
     Indication: HAEMORRHAGE PROPHYLAXIS
     Dosage: 3 ML DAILY;
     Route: 042
     Dates: start: 20170121
  5. LONQUEX [Suspect]
     Active Substance: LIPEGFILGRASTIM
     Dosage: 0 MILLIGRAM DAILY;
  6. DACTINOMYCIN [Suspect]
     Active Substance: DACTINOMYCIN
     Indication: EMBRYONAL RHABDOMYOSARCOMA
     Dosage: 1.32 MILLIGRAM DAILY;
     Route: 042
     Dates: start: 20170114, end: 20170114
  7. ONDANSETRONUM [Concomitant]
     Active Substance: ONDANSETRON
     Dosage: 12 MILLIGRAM DAILY;
     Route: 042
     Dates: start: 20170114, end: 20170116
  8. VINCRISTINE [Suspect]
     Active Substance: VINCRISTINE
     Indication: EMBRYONAL RHABDOMYOSARCOMA
     Dosage: 1.32 MILLIGRAM DAILY;
     Route: 042
     Dates: start: 20170114, end: 20170114
  9. ONDANSETRONUM [Concomitant]
     Active Substance: ONDANSETRON
     Indication: PROPHYLAXIS OF NAUSEA AND VOMITING
     Dosage: 12 MILLIGRAM DAILY;
     Route: 042
     Dates: start: 20161223, end: 20161225
  10. NEUPOGEN [Suspect]
     Active Substance: FILGRASTIM
     Indication: EMBRYONAL RHABDOMYOSARCOMA
     Dosage: 105 MICROGRAM DAILY;
     Route: 058
     Dates: start: 20161226, end: 20170105
  11. AMINOCAPRONIC ACID [Concomitant]
     Active Substance: AMINOCAPROIC ACID
     Indication: HAEMORRHAGE PROPHYLAXIS
     Dosage: 30 ML DAILY;
     Route: 042
     Dates: start: 20170121
  12. DOXORUBICIN [Suspect]
     Active Substance: DOXORUBICIN
     Indication: EMBRYONAL RHABDOMYOSARCOMA
     Dosage: 26.4 MILLIGRAM DAILY;
     Route: 042
     Dates: start: 20170115, end: 20170116
  13. ONDANSETRONUM [Concomitant]
     Active Substance: ONDANSETRON
     Dosage: 12 MILLIGRAM DAILY;
     Route: 042
     Dates: start: 20170121, end: 20170121

REACTIONS (2)
  - Neutropenia [Recovered/Resolved]
  - Febrile neutropenia [Recovered/Resolved]

NARRATIVE: CASE EVENT DATE: 20170124
